FAERS Safety Report 11638779 (Version 1)
Quarter: 2015Q4

REPORT INFORMATION
  Report Type: Report from Study
  Country: BR (occurrence: BR)
  Receive Date: 20151016
  Receipt Date: 20151016
  Transmission Date: 20160304
  Serious: Yes (Death, Hospitalization)
  Sender: FDA-Public Use
  Company Number: US-ASTRAZENECA-2015SE99710

PATIENT
  Age: 11 Month
  Sex: Female
  Weight: 3.2 kg

DRUGS (1)
  1. SYNAGIS [Suspect]
     Active Substance: PALIVIZUMAB
     Indication: PREMATURE BABY
     Route: 030

REACTIONS (3)
  - Pneumonia [Unknown]
  - Bronchiolitis [Fatal]
  - Death [Fatal]

NARRATIVE: CASE EVENT DATE: 201504
